FAERS Safety Report 7630700 (Version 6)
Quarter: 2012Q4

REPORT INFORMATION
  Report Type: 
  Country: US (occurrence: US)
  Receive Date: 20101015
  Receipt Date: 20120926
  Transmission Date: 20130627
  Serious: Yes (Other)
  Sender: FDA-Public Use
  Company Number: US-JNJFOC-20101002827

PATIENT
  Age: 51 Year
  Sex: Female
  Weight: 77.11 kg

DRUGS (10)
  1. LEVAQUIN [Suspect]
     Indication: SINUSITIS
     Dosage: event occurred after patient took the second pill
     Route: 048
     Dates: start: 20101005, end: 20101007
  2. IBUPROFEN [Concomitant]
     Indication: PAIN
     Dosage: as needed
     Route: 048
  3. PREDNISONE [Concomitant]
     Indication: SINUS HEADACHE
     Dosage: 4 tablets on days 1 and 2, 3 tablets on days 3 and 4; and 1 tablet for next 2days and dicontinue
     Route: 048
     Dates: start: 20101005, end: 20101008
  4. PREDNISONE [Concomitant]
     Indication: EUSTACHIAN TUBE DISORDER
     Dosage: 4 tablets on days 1 and 2, 3 tablets on days 3 and 4; and 1 tablet for next 2days and dicontinue
     Route: 048
     Dates: start: 20101005, end: 20101008
  5. EFFEXOR [Concomitant]
     Indication: DEPRESSION
     Dosage: patient discontinued on her own
     Route: 048
     Dates: start: 200912, end: 201009
  6. EFFEXOR [Concomitant]
     Indication: DEPRESSION
     Route: 048
  7. PENICILLIN NOS [Concomitant]
     Route: 065
  8. ANTIBIOTICS NOS [Concomitant]
     Route: 065
  9. CEFODIZIME [Concomitant]
     Route: 065
  10. VICODIN [Concomitant]
     Indication: PAIN
     Dosage: one to two as needed
     Route: 048

REACTIONS (8)
  - Intervertebral disc degeneration [Unknown]
  - Nail discolouration [Recovered/Resolved]
  - Skin discolouration [Recovered/Resolved]
  - Neuralgia [Recovering/Resolving]
  - Osteoarthritis [Unknown]
  - Lymphadenopathy [Unknown]
  - Ear pain [Recovering/Resolving]
  - Pain in jaw [Unknown]
